FAERS Safety Report 7544303-0 (Version None)
Quarter: 2011Q2

REPORT INFORMATION
  Report Type: 
  Country: None (occurrence: None)
  Receive Date: 20110613
  Receipt Date: 20080313
  Transmission Date: 20111010
  Serious: Yes (Life-Threatening, Hospitalization, Other)
  Sender: FDA-Public Use
  Company Number: PHFR2006GB00585

PATIENT
  Sex: Male

DRUGS (7)
  1. LITHIUM [Concomitant]
     Indication: DEPRESSION
     Dosage: 1600 MG/DAY
     Route: 048
     Dates: start: 20050501
  2. CLOMIPRAMINE HYDROCHLORIDE [Concomitant]
     Indication: DEPRESSION
     Dosage: 200MG/DAY
     Route: 048
     Dates: start: 20050601
  3. LITHIUM [Concomitant]
     Dosage: 1200MG/DAY
     Route: 048
  4. DIAZEPAM [Concomitant]
     Dosage: 35 MG, UNK
     Route: 048
  5. CLOZAPINE [Suspect]
     Indication: SCHIZOPHRENIA
     Dosage: 900MG DAILY
     Route: 048
     Dates: start: 20050901
  6. CLOMIPRAMINE HYDROCHLORIDE [Concomitant]
     Dosage: 150MG/DAY
     Route: 048
     Dates: start: 20050601
  7. DIAZEPAM [Concomitant]
     Indication: DEPENDENCE
     Dosage: 40 MG/DAY
     Route: 048
     Dates: start: 20030101

REACTIONS (8)
  - DIFFERENTIAL WHITE BLOOD CELL COUNT ABNORMAL [None]
  - WHITE BLOOD CELL COUNT INCREASED [None]
  - PLATELET COUNT INCREASED [None]
  - NEUTROPHIL COUNT INCREASED [None]
  - PNEUMONIA [None]
  - LOWER RESPIRATORY TRACT INFECTION [None]
  - ANAEMIA [None]
  - HAEMOGLOBIN DECREASED [None]
